FAERS Safety Report 13181195 (Version 1)
Quarter: 2017Q1

REPORT INFORMATION
  Report Type: Spontaneous
  Country: US (occurrence: US)
  Receive Date: 20170202
  Receipt Date: 20170202
  Transmission Date: 20170428
  Serious: No
  Sender: FDA-Public Use
  Company Number: US-SMITH AND NEPHEW, INC-2016SMT00872

PATIENT
  Age: 74 Year
  Sex: Male
  Weight: 70.3 kg

DRUGS (10)
  1. MOVE FREE OTC [Concomitant]
  2. ASACOL [Concomitant]
     Active Substance: MESALAMINE
     Dosage: 180 MG, 3X/DAY
  3. CALCIUM MAGNESIUM ZINC [Concomitant]
     Active Substance: CALCIUM\MAGNESIUM\ZINC
  4. LYRICA [Concomitant]
     Active Substance: PREGABALIN
  5. REGRANEX [Suspect]
     Active Substance: BECAPLERMIN
     Indication: WOUND
     Dosage: UNK UNK, 1X/DAY
     Route: 061
     Dates: start: 20160922
  6. CELEXA [Concomitant]
     Active Substance: CITALOPRAM HYDROBROMIDE
     Dosage: 10 MG, UNK
  7. MULTIVITAMIN [Concomitant]
     Active Substance: VITAMINS
  8. UNSPECIFIED PROBIOTICS [Concomitant]
  9. METOPROLOL. [Concomitant]
     Active Substance: METOPROLOL
     Dosage: 25 MG, UNK
  10. CEFTIN [Concomitant]
     Active Substance: CEFUROXIME AXETIL
     Indication: CELLULITIS
     Dosage: UNK, 2X/DAY
     Route: 042

REACTIONS (2)
  - Wound complication [Recovered/Resolved]
  - Wound secretion [Recovered/Resolved]

NARRATIVE: CASE EVENT DATE: 20160923
